FAERS Safety Report 9105476 (Version 2)
Quarter: 2013Q2

REPORT INFORMATION
  Report Type: Spontaneous
  Country: US (occurrence: US)
  Receive Date: 20130220
  Receipt Date: 20130411
  Transmission Date: 20140414
  Serious: Yes (Other)
  Sender: FDA-Public Use
  Company Number: US-PFIZER INC-2013064104

PATIENT
  Age: 58 Year
  Sex: Male
  Weight: 136 kg

DRUGS (3)
  1. LIPITOR [Suspect]
     Indication: BLOOD CHOLESTEROL INCREASED
     Dosage: UNK,ONCE DAILY
  2. CELEBREX [Suspect]
     Indication: BACK PAIN
     Dosage: UNK,ONCE DAILY
  3. AMBIEN [Concomitant]
     Indication: SLEEP DISORDER
     Dosage: 20 MG, UNK

REACTIONS (1)
  - Neoplasm malignant [Not Recovered/Not Resolved]
